FAERS Safety Report 21041276 (Version 4)
Quarter: 2022Q3

REPORT INFORMATION
  Report Type: Report from Study
  Country: CH (occurrence: CH)
  Receive Date: 20220705
  Receipt Date: 20220824
  Transmission Date: 20221026
  Serious: Yes (Other)
  Sender: FDA-Public Use
  Company Number: CH-ABBVIE-22K-151-4454781-00

PATIENT
  Age: 59 Year
  Sex: Male

DRUGS (5)
  1. CARBIDOPA\LEVODOPA [Suspect]
     Active Substance: CARBIDOPA\LEVODOPA
     Indication: Parkinson^s disease
     Dosage: MD 7.0ML, CRD 4.0ML/H, CRN 0ML/H, ED 1.0ML
     Route: 050
     Dates: start: 20220701, end: 20220708
  2. CARBIDOPA\LEVODOPA [Suspect]
     Active Substance: CARBIDOPA\LEVODOPA
     Dosage: MD 7.0ML, CRD 4.6ML/H, CRN 0ML/H, ED 1.0ML
     Route: 050
     Dates: start: 20220708, end: 20220711
  3. CARBIDOPA\LEVODOPA [Suspect]
     Active Substance: CARBIDOPA\LEVODOPA
     Dosage: MD 7.0ML, CRD 4.8ML/H, CRN 0ML/H, ED 1.0ML
     Route: 050
     Dates: start: 20220711, end: 20220728
  4. CARBIDOPA\LEVODOPA [Suspect]
     Active Substance: CARBIDOPA\LEVODOPA
     Dosage: MD 7.0ML, CRD 5.0ML/H, CRN 0ML/H, ED 1.0ML
     Route: 050
     Dates: start: 20220728, end: 20220818
  5. CARBIDOPA\LEVODOPA [Suspect]
     Active Substance: CARBIDOPA\LEVODOPA
     Dosage: MD 7.0ML, CRD 6.2ML/H, CRN 0ML/H, ED 1.0ML
     Route: 050
     Dates: start: 20220818

REACTIONS (9)
  - Multiple system atrophy [Unknown]
  - Dysarthria [Not Recovered/Not Resolved]
  - Wheelchair user [Recovering/Resolving]
  - Parenteral nutrition [Not Recovered/Not Resolved]
  - Fatigue [Unknown]
  - Dysphagia [Unknown]
  - Freezing phenomenon [Unknown]
  - Unevaluable event [Unknown]
  - Device issue [Unknown]

NARRATIVE: CASE EVENT DATE: 20220701
